FAERS Safety Report 9458920 (Version 4)
Quarter: 2013Q4

REPORT INFORMATION
  Report Type: Spontaneous
  Country: US (occurrence: US)
  Receive Date: 20130814
  Receipt Date: 20131001
  Transmission Date: 20140711
  Serious: Yes (Other)
  Sender: FDA-Public Use
  Company Number: US-JNJFOC-20130802540

PATIENT
  Sex: Male

DRUGS (4)
  1. RISPERDAL [Suspect]
     Indication: ATTENTION DEFICIT/HYPERACTIVITY DISORDER
     Route: 048
     Dates: start: 20110214
  2. RISPERDAL [Suspect]
     Indication: BIPOLAR DISORDER
     Route: 048
     Dates: start: 20110214
  3. ABILIFY [Suspect]
     Indication: ATTENTION DEFICIT/HYPERACTIVITY DISORDER
     Route: 065
  4. ABILIFY [Suspect]
     Indication: BIPOLAR DISORDER
     Route: 065

REACTIONS (5)
  - Weight increased [Recovering/Resolving]
  - Thyroid function test abnormal [Recovered/Resolved]
  - Acanthosis nigricans [Unknown]
  - Gynaecomastia [Not Recovered/Not Resolved]
  - Increased appetite [Unknown]
